FAERS Safety Report 12632582 (Version 2)
Quarter: 2016Q3

REPORT INFORMATION
  Report Type: Spontaneous
  Country: US (occurrence: US)
  Receive Date: 20160808
  Receipt Date: 20160808
  Transmission Date: 20161109
  Serious: No
  Sender: FDA-Public Use
  Company Number: US-BEH-2015056120

PATIENT
  Sex: Female
  Weight: 65 kg

DRUGS (18)
  1. HIZENTRA [Suspect]
     Active Substance: HUMAN IMMUNOGLOBULIN G
  2. MINOCYCLINE [Concomitant]
     Active Substance: MINOCYCLINE\MINOCYCLINE HYDROCHLORIDE
  3. HIZENTRA [Suspect]
     Active Substance: HUMAN IMMUNOGLOBULIN G
     Route: 058
  4. FOLIC ACID. [Concomitant]
     Active Substance: FOLIC ACID
  5. PROBIOTIC [Concomitant]
     Active Substance: PROBIOTICS NOS
  6. PAXIL [Concomitant]
     Active Substance: PAROXETINE HYDROCHLORIDE
  7. ADVAIR HFA [Concomitant]
     Active Substance: FLUTICASONE PROPIONATE\SALMETEROL XINAFOATE
  8. PROAIR HFA [Concomitant]
     Active Substance: ALBUTEROL SULFATE
  9. DIPHENHYDRAMINE. [Concomitant]
     Active Substance: DIPHENHYDRAMINE
  10. EPIPEN [Concomitant]
     Active Substance: EPINEPHRINE
  11. PREDNISONE. [Concomitant]
     Active Substance: PREDNISONE
  12. L-M-X [Concomitant]
  13. METHOTREXATE. [Concomitant]
     Active Substance: METHOTREXATE
  14. ESTRADIOL. [Concomitant]
     Active Substance: ESTRADIOL
  15. ACETAMINOPHEN. [Concomitant]
     Active Substance: ACETAMINOPHEN
  16. HIZENTRA [Suspect]
     Active Substance: HUMAN IMMUNOGLOBULIN G
     Indication: IMMUNODEFICIENCY COMMON VARIABLE
  17. LEUCOVORIN CALCIUM. [Concomitant]
     Active Substance: LEUCOVORIN CALCIUM
  18. ZANTAC [Concomitant]
     Active Substance: RANITIDINE HYDROCHLORIDE

REACTIONS (1)
  - Bronchitis [Unknown]
